FAERS Safety Report 20993788 (Version 1)
Quarter: 2022Q2

REPORT INFORMATION
  Report Type: Spontaneous
  Country: None (occurrence: A1)
  Receive Date: 20220622
  Receipt Date: 20220622
  Transmission Date: 20220721
  Serious: Yes (Hospitalization)
  Sender: FDA-Public Use
  Company Number: A1-Avion Pharmaceuticals, LLC-2130166

PATIENT
  Age: 56 Year
  Sex: Female

DRUGS (12)
  1. DHIVY [Suspect]
     Active Substance: CARBIDOPA\LEVODOPA
     Indication: Parkinson^s disease
     Route: 065
  2. FLUOXETINE [Concomitant]
     Active Substance: FLUOXETINE HYDROCHLORIDE
     Route: 065
  3. PAROXETINE [Suspect]
     Active Substance: PAROXETINE
     Route: 065
  4. BENSERAZIDE [Suspect]
     Active Substance: BENSERAZIDE
     Route: 065
  5. LEVODOPA [Suspect]
     Active Substance: LEVODOPA
     Route: 065
  6. ENTACAPONE [Suspect]
     Active Substance: ENTACAPONE
     Route: 065
  7. VENLAFAXINE [Concomitant]
     Active Substance: VENLAFAXINE HYDROCHLORIDE
     Route: 065
  8. LORAZEPAM [Concomitant]
     Active Substance: LORAZEPAM
     Route: 065
  9. ALPRAZOLAM [Concomitant]
     Active Substance: ALPRAZOLAM
     Route: 065
  10. TRIHEXYPHENIDYL [Concomitant]
     Active Substance: TRIHEXYPHENIDYL
     Route: 065
  11. SCOPOLAMINE HYDROBROMIDE [Concomitant]
     Active Substance: SCOPOLAMINE HYDROBROMIDE
     Route: 065
  12. NALOXONE HCL [Concomitant]
     Active Substance: NALOXONE HYDROCHLORIDE
     Route: 065

REACTIONS (17)
  - Restlessness [Unknown]
  - Depressive symptom [Unknown]
  - Gait disturbance [Unknown]
  - Parkinsonism [Unknown]
  - Muscle tightness [Recovered/Resolved]
  - Depressed level of consciousness [Unknown]
  - Time perception altered [Unknown]
  - Disorganised speech [Unknown]
  - Dyskinesia [Unknown]
  - Speech disorder [Unknown]
  - Delirium [Recovered/Resolved]
  - Memory impairment [Unknown]
  - Muscle rigidity [Unknown]
  - Bradykinesia [Unknown]
  - Hyperreflexia [Unknown]
  - Depression [Unknown]
  - Musculoskeletal stiffness [Unknown]
